FAERS Safety Report 4436838-4 (Version None)
Quarter: 2004Q3

REPORT INFORMATION
  Report Type: 
  Country: None (occurrence: None)
  Receive Date: 20040827
  Receipt Date: 20040815
  Transmission Date: 20050211
  Serious: Yes (Other)
  Sender: FDA-Public Use
  Company Number: 2004056360

PATIENT
  Sex: Male

DRUGS (1)
  1. DRAMAMINE-D TAB [Suspect]
     Indication: EUPHORIC MOOD
     Dosage: 12 TABLETS ONCE, ORAL
     Route: 048
     Dates: start: 20040815, end: 20040815

REACTIONS (3)
  - FEELING ABNORMAL [None]
  - NERVOUSNESS [None]
  - OVERDOSE [None]
